FAERS Safety Report 8175058-7 (Version None)
Quarter: 2012Q1

REPORT INFORMATION
  Report Type: 
  Country: None (occurrence: None)
  Receive Date: 20120227
  Receipt Date: 20120213
  Transmission Date: 20120608
  Serious: Yes (Disabling)
  Sender: FDA-Public Use
  Company Number: DE-1190531

PATIENT
  Age: 12 Year
  Sex: Male

DRUGS (1)
  1. CYCLOPENTOLATE HCL [Suspect]
     Indication: OPHTHALMOLOGICAL EXAMINATION
     Dosage: OPHTHALMIC
     Route: 047
     Dates: start: 20120111, end: 20120111

REACTIONS (6)
  - VISUAL IMPAIRMENT [None]
  - READING DISORDER [None]
  - TRUANCY [None]
  - HEADACHE [None]
  - PHOTOPHOBIA [None]
  - VISION BLURRED [None]
